FAERS Safety Report 8805524 (Version 1)
Quarter: 2012Q4

REPORT INFORMATION
  Report Type: Report from Study
  Country: US (occurrence: US)
  Receive Date: 20120924
  Receipt Date: 20120924
  Transmission Date: 20130627
  Serious: Yes (Other)
  Sender: FDA-Public Use
  Company Number: US-US-EMD SERONO, INC.-7162170

PATIENT
  Sex: Female

DRUGS (1)
  1. REBIF [Suspect]
     Indication: MULTIPLE SCLEROSIS
     Route: 058
     Dates: start: 20070910, end: 201208

REACTIONS (4)
  - Diverticulitis [Recovered/Resolved]
  - Memory impairment [Unknown]
  - Multiple sclerosis [Unknown]
  - Gait disturbance [Unknown]
